FAERS Safety Report 7822195-X (Version None)
Quarter: 2011Q4

REPORT INFORMATION
  Report Type: 
  Country: None (occurrence: None)
  Receive Date: 20111018
  Receipt Date: 20111004
  Transmission Date: 20120403
  Serious: Yes (Other)
  Sender: FDA-Public Use
  Company Number: CH-MYLANLABS-2011S1021120

PATIENT
  Age: 68 Year
  Sex: Male

DRUGS (3)
  1. FLUDARABINE PHOSPHATE [Suspect]
     Indication: LEUKAEMIA
     Route: 065
  2. CYCLOPHOSPHAMIDE [Suspect]
     Indication: LEUKAEMIA
     Route: 065
  3. RITUXIMAB [Suspect]
     Indication: LEUKAEMIA
     Route: 065

REACTIONS (2)
  - CYTOMEGALOVIRUS CHORIORETINITIS [None]
  - CYSTOID MACULAR OEDEMA [None]
